FAERS Safety Report 18586547 (Version 2)
Quarter: 2020Q4

REPORT INFORMATION
  Report Type: Report from Study
  Country: None (occurrence: DE)
  Receive Date: 20201207
  Receipt Date: 20201208
  Transmission Date: 20210114
  Serious: Yes (Other)
  Sender: FDA-Public Use
  Company Number: DE-ABBVIE-20K-062-3675876-00

PATIENT
  Sex: Female

DRUGS (2)
  1. DECORTIN [Concomitant]
     Active Substance: PREDNISONE
     Indication: PRODUCT USED FOR UNKNOWN INDICATION
  2. RINVOQ [Suspect]
     Active Substance: UPADACITINIB
     Indication: RHEUMATOID ARTHRITIS
     Route: 048
     Dates: start: 202008

REACTIONS (11)
  - Hyperhidrosis [Unknown]
  - Gastric disorder [Unknown]
  - Body temperature decreased [Unknown]
  - Joint stiffness [Unknown]
  - Arthralgia [Unknown]
  - Hot flush [Unknown]
  - Throat irritation [Unknown]
  - Dry mouth [Unknown]
  - Headache [Unknown]
  - Feeling abnormal [Unknown]
  - Head discomfort [Unknown]

NARRATIVE: CASE EVENT DATE: 2020
